FAERS Safety Report 5892934-6 (Version None)
Quarter: 2008Q3

REPORT INFORMATION
  Report Type: 
  Country: None (occurrence: None)
  Receive Date: 20080922
  Receipt Date: 20080922
  Transmission Date: 20090109
  Serious: Yes (Hospitalization)
  Sender: FDA-Public Use
  Company Number: None

PATIENT
  Age: 61 Year
  Sex: Female
  Weight: 127.9 kg

DRUGS (17)
  1. DOXORUBICIN HCL [Suspect]
     Indication: BREAST CANCER METASTATIC
     Dosage: 60MG/M2 -132 MG- EVERY 3 WEEKS IV
     Route: 042
     Dates: start: 20080718, end: 20080829
  2. CYCLOPHOSPHAMIDE [Suspect]
     Dosage: 600MG/M2 -1320 MG- EVERY 3 WEEKS IV
     Route: 042
     Dates: start: 20080718, end: 20080829
  3. ZOFRAN [Concomitant]
  4. DECADRON [Concomitant]
  5. COMPAZINE [Concomitant]
  6. PHENERGAN HCL [Concomitant]
  7. CALCIUM W/ VIT D [Concomitant]
  8. ATIVAN [Concomitant]
  9. AGRONOX [Concomitant]
  10. FELODAPINE [Concomitant]
  11. METOPROLOL [Concomitant]
  12. HYDROCHLOROTHIAZIDE [Concomitant]
  13. TUMS [Concomitant]
  14. IBUPROFEN [Concomitant]
  15. LOMOTIL [Concomitant]
  16. EMEND [Concomitant]
  17. POTASSIUM CHLORIDE [Concomitant]

REACTIONS (2)
  - DEEP VEIN THROMBOSIS [None]
  - PULMONARY EMBOLISM [None]
